FAERS Safety Report 9970354 (Version 1)
Quarter: 2014Q1

REPORT INFORMATION
  Report Type: Report from Study
  Country: US (occurrence: US)
  Receive Date: 20140306
  Receipt Date: 20140306
  Transmission Date: 20141002
  Serious: No
  Sender: FDA-Public Use
  Company Number: US-ABBVIE-13P-163-1149567-00

PATIENT
  Age: 47 Year
  Sex: Male

DRUGS (11)
  1. HUMIRA [Suspect]
     Indication: PRODUCT USED FOR UNKNOWN INDICATION
     Dates: start: 20130819
  2. ZAFIRLUKAST [Concomitant]
     Indication: ASTHMA
  3. BABY ASPIRIN [Concomitant]
     Indication: PRODUCT USED FOR UNKNOWN INDICATION
  4. DALIRESP [Concomitant]
     Indication: ASTHMA
  5. LISINOPRIL [Concomitant]
     Indication: HYPERTENSION
  6. AMLODIPINE [Concomitant]
     Indication: HYPERTENSION
  7. FLUTICASONE PROPIONATE [Concomitant]
     Indication: ASTHMA
  8. FLUTICASONE PROPIONATE [Concomitant]
     Indication: HYPERSENSITIVITY
  9. BENADRYL [Concomitant]
     Indication: PRURITUS
  10. ALBUTEROL HFA [Concomitant]
     Indication: ASTHMA
  11. ALBUTEROL [Concomitant]
     Indication: ASTHMA

REACTIONS (5)
  - Joint swelling [Not Recovered/Not Resolved]
  - Local swelling [Not Recovered/Not Resolved]
  - Dyspnoea [Not Recovered/Not Resolved]
  - Arthralgia [Not Recovered/Not Resolved]
  - Pain in extremity [Not Recovered/Not Resolved]
